FAERS Safety Report 10476610 (Version 2)
Quarter: 2014Q4

REPORT INFORMATION
  Report Type: Spontaneous
  Country: IT (occurrence: IT)
  Receive Date: 20140925
  Receipt Date: 20141226
  Transmission Date: 20150528
  Serious: Yes (Other)
  Sender: FDA-Public Use
  Company Number: IT-SA-2014SA131360

PATIENT
  Age: 85 Year
  Sex: Female

DRUGS (9)
  1. KCL-RETARD [Concomitant]
     Active Substance: POTASSIUM CHLORIDE
  2. DILATREND [Suspect]
     Active Substance: CARVEDILOL
     Route: 048
     Dates: start: 20120101, end: 20140921
  3. ANTRA [Concomitant]
     Active Substance: OMEPRAZOLE
  4. VASORETIC [Suspect]
     Active Substance: ENALAPRIL MALEATE\HYDROCHLOROTHIAZIDE
     Dosage: 20 MG+12.5 MG TABLET
     Route: 048
     Dates: start: 20120201, end: 20140921
  5. CO-EFFERALGAN [Concomitant]
     Active Substance: ACETAMINOPHEN\CODEINE PHOSPHATE
  6. COUMADIN [Concomitant]
     Active Substance: WARFARIN SODIUM
  7. EUTIROX [Concomitant]
     Active Substance: LEVOTHYROXINE SODIUM
  8. HUMALOG [Concomitant]
     Active Substance: INSULIN LISPRO
  9. LASIX [Suspect]
     Active Substance: FUROSEMIDE
     Route: 048
     Dates: start: 20120101, end: 20140921

REACTIONS (1)
  - Syncope [Recovering/Resolving]

NARRATIVE: CASE EVENT DATE: 20140621
